FAERS Safety Report 15106911 (Version 1)
Quarter: 2018Q3

REPORT INFORMATION
  Report Type: Spontaneous
  Country: US (occurrence: US)
  Receive Date: 20180704
  Receipt Date: 20180704
  Transmission Date: 20181010
  Serious: Yes (Other)
  Sender: FDA-Public Use
  Company Number: US-CURIUM PHARMACEUTICALS-199700124

PATIENT

DRUGS (1)
  1. GALLIUM CITRATE GA 67 [Suspect]
     Active Substance: GALLIUM CITRATE GA-67
     Indication: PRODUCT USED FOR UNKNOWN INDICATION

REACTIONS (3)
  - Rib fracture [None]
  - Upper limb fracture [Unknown]
  - Generalised tonic-clonic seizure [Unknown]
